FAERS Safety Report 26040522 (Version 1)
Quarter: 2025Q4

REPORT INFORMATION
  Report Type: Spontaneous
  Country: US (occurrence: None)
  Receive Date: 20251112
  Receipt Date: 20251112
  Transmission Date: 20260117
  Serious: Yes (Life-Threatening, Hospitalization, Disabling, Other)
  Sender: FDA-CTU
  Company Number: None

PATIENT
  Age: 44 Year
  Sex: Female
  Weight: 64.86 kg

DRUGS (1)
  1. CYMBALTA [Suspect]
     Active Substance: DULOXETINE HYDROCHLORIDE
     Indication: Tooth infection
     Dates: start: 20251108

REACTIONS (8)
  - Product tampering [None]
  - Product counterfeit [None]
  - Physical product label issue [None]
  - Product container seal issue [None]
  - Product quality issue [None]
  - Product sterility issue [None]
  - Product use issue [None]
  - Victim of crime [None]

NARRATIVE: CASE EVENT DATE: 20251108
